FAERS Safety Report 11646855 (Version 3)
Quarter: 2016Q2

REPORT INFORMATION
  Report Type: Report from Study
  Country: US (occurrence: US)
  Receive Date: 20151020
  Receipt Date: 20160526
  Transmission Date: 20160815
  Serious: Yes (Hospitalization)
  Sender: FDA-Public Use
  Company Number: US-ROCHE-ITM201504IM014784

PATIENT
  Age: 80 Year
  Sex: Female
  Weight: 47.67 kg

DRUGS (23)
  1. ESBRIET [Suspect]
     Active Substance: PIRFENIDONE
     Route: 048
  2. LOPRESSOR [Concomitant]
     Active Substance: METOPROLOL TARTRATE
     Route: 048
  3. METROGEL [Concomitant]
     Active Substance: METRONIDAZOLE
     Dosage: APPLY TWICE DAILY SPARINGLY.
     Route: 065
  4. FLONASE (UNITED STATES) [Concomitant]
     Dosage: ONE SPRAY IN EACH NOSTRIL DAILY AT BED TIME.
     Route: 065
  5. IMURAN [Concomitant]
     Active Substance: AZATHIOPRINE
     Route: 065
  6. ASPIRIN. [Concomitant]
     Active Substance: ASPIRIN
     Route: 065
  7. PERCOCET [Concomitant]
     Active Substance: ACETAMINOPHEN\OXYCODONE HYDROCHLORIDE
     Dosage: 5-325 MG TABLETS. TWO TABLETS BY MOUTH EVERY 6 HOURS AS NEEDED.
     Route: 048
  8. NORVASC [Concomitant]
     Active Substance: AMLODIPINE BESYLATE
     Route: 048
  9. EVISTA [Concomitant]
     Active Substance: RALOXIFENE HYDROCHLORIDE
     Route: 048
  10. PRAVACHOL [Concomitant]
     Active Substance: PRAVASTATIN SODIUM
     Dosage: AT BED TIME.
     Route: 048
  11. PREDNISONE. [Concomitant]
     Active Substance: PREDNISONE
     Indication: IDIOPATHIC PULMONARY FIBROSIS
     Route: 048
  12. ESBRIET [Suspect]
     Active Substance: PIRFENIDONE
     Route: 048
     Dates: start: 201501
  13. BACTRIM [Suspect]
     Active Substance: SULFAMETHOXAZOLE\TRIMETHOPRIM
     Indication: PRODUCT USED FOR UNKNOWN INDICATION
     Route: 065
  14. ZOFRAN [Concomitant]
     Active Substance: ONDANSETRON HYDROCHLORIDE
     Indication: NAUSEA
     Route: 065
  15. SYNVISC [Concomitant]
     Active Substance: HYALURONATE SODIUM
     Dosage: PAST
     Route: 065
  16. TAPAZOLE [Concomitant]
     Active Substance: METHIMAZOLE
     Dosage: HALF TABLET ON MONDAY, WED AND FRIDAY AND SATURDAY.
     Route: 065
  17. COUMADIN [Concomitant]
     Active Substance: WARFARIN SODIUM
     Dosage: 7.5 MG DAILY EXCEPT 5 MG SUNDAY, TUESDAY AND FRIDAY.
     Route: 065
  18. NIZORAL [Concomitant]
     Active Substance: KETOCONAZOLE
  19. ESBRIET [Suspect]
     Active Substance: PIRFENIDONE
     Indication: IDIOPATHIC PULMONARY FIBROSIS
     Dosage: 3 CAPSULES THREE TIMES A DAY
     Route: 048
     Dates: start: 20150312
  20. DELTASONE (UNITED STATES) [Concomitant]
     Dosage: EVERY 48 HOURS.
     Route: 065
  21. SYNVISC [Concomitant]
     Active Substance: HYALURONATE SODIUM
     Route: 065
  22. AMOXICILLIN. [Concomitant]
     Active Substance: AMOXICILLIN
  23. OXYGEN. [Concomitant]
     Active Substance: OXYGEN
     Indication: IDIOPATHIC PULMONARY FIBROSIS
     Route: 055
     Dates: start: 201512

REACTIONS (14)
  - Dyspnoea [Recovered/Resolved]
  - Hypopnoea [Recovered/Resolved]
  - Back disorder [Unknown]
  - Dysgeusia [Unknown]
  - Weight decreased [Recovered/Resolved]
  - Nausea [Recovered/Resolved]
  - Ephelides [Not Recovered/Not Resolved]
  - Respiratory disorder [Recovered/Resolved]
  - Cough [Unknown]
  - Oedema [Recovered/Resolved]
  - Oxygen consumption [Unknown]
  - Decreased appetite [Recovered/Resolved]
  - Drug hypersensitivity [Unknown]
  - Insomnia [Recovered/Resolved]

NARRATIVE: CASE EVENT DATE: 201503
